FAERS Safety Report 21184681 (Version 1)
Quarter: 2022Q3

REPORT INFORMATION
  Report Type: Spontaneous
  Country: PL (occurrence: PL)
  Receive Date: 20220808
  Receipt Date: 20220808
  Transmission Date: 20221027
  Serious: Yes (Hospitalization, Other)
  Sender: FDA-Public Use
  Company Number: PL-NOVARTISPH-NVSC2022PL174783

PATIENT
  Age: 65 Year
  Sex: Male

DRUGS (3)
  1. EVEROLIMUS [Suspect]
     Active Substance: EVEROLIMUS
     Indication: Pancreatic neuroendocrine tumour
     Dosage: 10 MG, QD
     Route: 065
  2. EVEROLIMUS [Suspect]
     Active Substance: EVEROLIMUS
     Indication: Metastases to liver
     Dosage: 10 MG, QD
     Route: 065
     Dates: start: 20220522
  3. EVEROLIMUS [Suspect]
     Active Substance: EVEROLIMUS
     Indication: Metastases to bone
     Dosage: 5 MG, QD
     Route: 065
     Dates: start: 20220702, end: 20220719

REACTIONS (16)
  - Interstitial lung disease [Unknown]
  - Chronic kidney disease [Unknown]
  - Metastases to bone [Unknown]
  - Metastases to liver [Unknown]
  - Pancreatic neuroendocrine tumour [Unknown]
  - Malignant neoplasm progression [Unknown]
  - Pancytopenia [Unknown]
  - Leukopenia [Unknown]
  - Thrombocytopenia [Unknown]
  - Microcytic anaemia [Unknown]
  - Dyslipidaemia [Unknown]
  - Gastric disorder [Unknown]
  - Abdominal pain upper [Unknown]
  - Abdominal pain lower [Unknown]
  - Constipation [Unknown]
  - Vomiting [Unknown]
